FAERS Safety Report 10053082 (Version 1)
Quarter: 2014Q2

REPORT INFORMATION
  Report Type: Spontaneous
  Country: FR (occurrence: FR)
  Receive Date: 20140402
  Receipt Date: 20140402
  Transmission Date: 20141212
  Serious: Yes (Hospitalization, Other)
  Sender: FDA-Public Use
  Company Number: FR-PFIZER INC-2014088104

PATIENT
  Age: 61 Year
  Sex: Male

DRUGS (10)
  1. TAHOR [Suspect]
     Dosage: 10 MG, DAILY
     Route: 048
     Dates: start: 20110101
  2. XARELTO [Suspect]
     Indication: DEEP VEIN THROMBOSIS
     Dosage: 15 MG, 2X/DAY
     Route: 048
     Dates: start: 20140207, end: 20140306
  3. KARDEGIC [Suspect]
     Dosage: 75 MG, DAILY
     Route: 048
     Dates: start: 20110101
  4. INEXIUM [Suspect]
     Dosage: 40 MG, DAILY
     Route: 048
  5. TEMERIT [Suspect]
     Dosage: 2.5 MG, DAILY
     Route: 048
     Dates: start: 20110101
  6. SPIRONOLACTONE [Concomitant]
     Dosage: 0.5 DF, DAILY
  7. AZARGA [Concomitant]
     Dosage: 1 GTT, 2X/DAY
  8. ACUPAN [Concomitant]
     Dosage: 3 DF, DAILY
  9. STILNOX [Concomitant]
     Dosage: 1 DF, DAILY
  10. DOLIPRANE [Concomitant]
     Dosage: 1 G, 3X/DAY

REACTIONS (2)
  - Haemarthrosis [Not Recovered/Not Resolved]
  - Venous thrombosis limb [Unknown]
